FAERS Safety Report 22608041 (Version 2)
Quarter: 2023Q2

REPORT INFORMATION
  Report Type: Spontaneous
  Country: US (occurrence: US)
  Receive Date: 20230616
  Receipt Date: 20230626
  Transmission Date: 20230722
  Serious: Yes (Hospitalization)
  Sender: FDA-Public Use
  Company Number: US-TEVA-2023-US-2895936

PATIENT
  Age: 32 Year
  Sex: Male

DRUGS (2)
  1. DEXMEDETOMIDINE [Suspect]
     Active Substance: DEXMEDETOMIDINE
     Indication: Sedative therapy
     Dosage: 0.2 MCG/KG/HR (CONTINUOUS INFUSION OF DEXMEDETOMIDINE 0.2 MCG/KG/HR AND GRADUALLY INCREASE..)
     Route: 065
  2. DEXMEDETOMIDINE [Suspect]
     Active Substance: DEXMEDETOMIDINE
     Dosage: 0.8 MCG/KG/HR
     Route: 065

REACTIONS (2)
  - Diabetes insipidus [Unknown]
  - Torsade de pointes [Unknown]
